FAERS Safety Report 9736860 (Version 1)
Quarter: 2013Q4

REPORT INFORMATION
  Report Type: Spontaneous
  Country: US (occurrence: US)
  Receive Date: 20131206
  Receipt Date: 20131206
  Transmission Date: 20140711
  Serious: No
  Sender: FDA-Public Use
  Company Number: US-BIOGENIDEC-2013BI092455

PATIENT
  Sex: Female

DRUGS (7)
  1. TECFIDERA [Suspect]
     Indication: MULTIPLE SCLEROSIS
     Dates: start: 201305, end: 201307
  2. TECFIDERA [Suspect]
     Indication: MULTIPLE SCLEROSIS
     Route: 048
     Dates: start: 20130917
  3. AMPYRA [Concomitant]
  4. VITAMIN D [Concomitant]
  5. FISH OIL [Concomitant]
  6. CALCIUM 500 [Concomitant]
  7. BACLOFEN [Concomitant]

REACTIONS (3)
  - Treatment failure [Unknown]
  - Multiple sclerosis [Unknown]
  - Prescribed underdose [Unknown]
